FAERS Safety Report 5578295-0 (Version None)
Quarter: 2007Q4

REPORT INFORMATION
  Report Type: 
  Country: None (occurrence: None)
  Receive Date: 20071231
  Receipt Date: 20071221
  Transmission Date: 20080405
  Serious: Yes (Other)
  Sender: FDA-Public Use
  Company Number: US-PFIZER INC-2007091134

PATIENT
  Sex: Female

DRUGS (1)
  1. DETROL LA [Suspect]
     Route: 048

REACTIONS (8)
  - DIARRHOEA [None]
  - DRUG INEFFECTIVE [None]
  - DRY EYE [None]
  - DRY MOUTH [None]
  - FATIGUE [None]
  - GASTROINTESTINAL DISORDER [None]
  - MALAISE [None]
  - THROAT IRRITATION [None]
